FAERS Safety Report 6054046-0 (Version None)
Quarter: 2009Q1

REPORT INFORMATION
  Report Type: 
  Country: None (occurrence: None)
  Receive Date: 20090127
  Receipt Date: 20090116
  Transmission Date: 20090719
  Serious: Yes (Death, Hospitalization)
  Sender: FDA-Public Use
  Company Number: JP-AMGEN-US315304

PATIENT
  Sex: Female
  Weight: 59 kg

DRUGS (13)
  1. ENBREL [Suspect]
     Indication: RHEUMATOID ARTHRITIS
     Dosage: 25 MG ONCE WEEKLY; LYOPHILIZED
     Route: 058
     Dates: start: 20080623
  2. ENDOXAN [Suspect]
     Indication: RHEUMATOID ARTHRITIS
     Route: 048
     Dates: start: 19990101, end: 20080701
  3. ENDOXAN [Suspect]
     Indication: AMYLOIDOSIS
  4. NEOISCOTIN [Suspect]
     Indication: ANTIBIOTIC PROPHYLAXIS
     Route: 045
     Dates: start: 20080617, end: 20080930
  5. PREDNISOLONE [Concomitant]
     Indication: RHEUMATOID ARTHRITIS
     Route: 048
     Dates: start: 19990101, end: 19990101
  6. PREDNISOLONE [Concomitant]
     Route: 048
     Dates: start: 19990101, end: 19990101
  7. PREDNISOLONE [Concomitant]
     Dosage: UNKNOWN
     Route: 048
     Dates: start: 19990101, end: 20060801
  8. PREDNISOLONE [Concomitant]
     Dosage: 6 MG; FREQUENCY UNSPECIFIED
     Route: 048
     Dates: start: 20060801, end: 20081110
  9. MOBIC [Concomitant]
     Indication: RHEUMATOID ARTHRITIS
     Route: 048
     Dates: start: 20070802, end: 20080930
  10. MUCOSTA [Concomitant]
     Indication: GASTRITIS
     Route: 048
     Dates: start: 20080729, end: 20081105
  11. PYRIDOXAL PHOSPHATE [Concomitant]
     Indication: PROPHYLAXIS
     Route: 048
     Dates: start: 20080617, end: 20080930
  12. MAGNESIUM OXIDE [Concomitant]
     Indication: CONSTIPATION
     Route: 048
     Dates: end: 20080714
  13. DIDRONEL [Concomitant]
     Indication: OSTEOPOROSIS
     Route: 048
     Dates: end: 20080930

REACTIONS (14)
  - AMYLOIDOSIS [None]
  - BODY TEMPERATURE INCREASED [None]
  - BONE MARROW FAILURE [None]
  - CARDIAC FAILURE CONGESTIVE [None]
  - CARDIOMEGALY [None]
  - CONDITION AGGRAVATED [None]
  - CYTOMEGALOVIRUS INFECTION [None]
  - DISSEMINATED INTRAVASCULAR COAGULATION [None]
  - HEPATITIS C [None]
  - PLATELET COUNT DECREASED [None]
  - PLEURAL EFFUSION [None]
  - POLYMYOSITIS [None]
  - PULMONARY ARTERY DILATATION [None]
  - RENAL FAILURE CHRONIC [None]
